FAERS Safety Report 6129210-2 (Version None)
Quarter: 2009Q1

REPORT INFORMATION
  Report Type: 
  Country: None (occurrence: None)
  Receive Date: 20090323
  Receipt Date: 20090323
  Transmission Date: 20090719
  Serious: Yes (Other)
  Sender: FDA-Public Use
  Company Number: None

PATIENT
  Age: 20 Year
  Sex: Female
  Weight: 49.8957 kg

DRUGS (1)
  1. PROAIR HFA [Suspect]
     Indication: ASTHMA
     Dosage: 180MCG EVERY 4-6HRS INHAL
     Route: 055
     Dates: start: 20080410, end: 20090322

REACTIONS (7)
  - ASTHMA [None]
  - BRONCHITIS [None]
  - DYSPNOEA [None]
  - EAR INFECTION [None]
  - NO THERAPEUTIC RESPONSE [None]
  - PRODUCT QUALITY ISSUE [None]
  - SINUSITIS [None]
